FAERS Safety Report 5768147-5 (Version None)
Quarter: 2008Q2

REPORT INFORMATION
  Report Type: 
  Country: None (occurrence: None)
  Receive Date: 20080601
  Receipt Date: 20071220
  Transmission Date: 20081010
  Serious: No
  Sender: FDA-Public Use
  Company Number: US200712004507

PATIENT
  Age: 61 Year
  Sex: Female
  Weight: 99.8 kg

DRUGS (8)
  1. BYETTA [Suspect]
     Indication: TYPE 2 DIABETES MELLITUS
     Dosage: 10 UG, 2/D, SUBCUTANEOUS; 5 UG, 2/D, SUBCUTANEOUS
     Route: 058
     Dates: start: 20071029, end: 20071101
  2. BYETTA [Suspect]
     Indication: TYPE 2 DIABETES MELLITUS
     Dosage: 10 UG, 2/D, SUBCUTANEOUS; 5 UG, 2/D, SUBCUTANEOUS
     Route: 058
     Dates: start: 20071101, end: 20071212
  3. EXENATIDE (EXENATIDE) [Concomitant]
  4. GLYBURIDE [Concomitant]
  5. LIPITOR [Concomitant]
  6. LOTENSIN [Concomitant]
  7. TRIAMTERENE AND HYDROCHLOROTHIAZIDE [Concomitant]
  8. LASIX [Concomitant]

REACTIONS (9)
  - ABDOMINAL PAIN [None]
  - ABDOMINAL PAIN UPPER [None]
  - BLOOD AMYLASE INCREASED [None]
  - DIARRHOEA [None]
  - DYSPEPSIA [None]
  - FLANK PAIN [None]
  - LIPASE INCREASED [None]
  - NAUSEA [None]
  - WEIGHT DECREASED [None]
